FAERS Safety Report 5355986-8 (Version None)
Quarter: 2007Q2

REPORT INFORMATION
  Report Type: 
  Country: None (occurrence: None)
  Receive Date: 20070613
  Receipt Date: 20070606
  Transmission Date: 20071010
  Serious: Yes (Other)
  Sender: FDA-Public Use
  Company Number: US-PFIZER INC-2007046525

PATIENT
  Sex: Female
  Weight: 79.4 kg

DRUGS (3)
  1. ZOLOFT [Suspect]
  2. VARENICLINE [Interacting]
     Indication: SMOKING CESSATION THERAPY
     Route: 048
  3. MULTIVITAMIN [Concomitant]

REACTIONS (2)
  - ARRHYTHMIA [None]
  - DRUG INTERACTION [None]
